FAERS Safety Report 8175727-9 (Version None)
Quarter: 2012Q1

REPORT INFORMATION
  Report Type: 
  Country: None (occurrence: None)
  Receive Date: 20120301
  Receipt Date: 20120220
  Transmission Date: 20120608
  Serious: Yes (Other)
  Sender: FDA-Public Use
  Company Number: JP-AMGEN-JPNCT2012013047

PATIENT
  Age: 77 Year
  Sex: Male
  Weight: 57 kg

DRUGS (3)
  1. ROMIPLOSTIM - KHK [Suspect]
     Indication: IDIOPATHIC THROMBOCYTOPENIC PURPURA
     Dosage: 2 MUG/KG, QD
     Route: 058
     Dates: start: 20110816, end: 20110823
  2. FEBURIC [Concomitant]
     Indication: HYPERURICAEMIA
     Dosage: UNCERTAINTY
     Route: 048
  3. GASMOTIN [Concomitant]
     Dosage: UNCERTAINTY
     Route: 048

REACTIONS (1)
  - MYELODYSPLASTIC SYNDROME [None]
